FAERS Safety Report 6996037 (Version 4)
Quarter: 2012Q4

REPORT INFORMATION
  Report Type: Report from Study
  Country: CZ (occurrence: CZ)
  Receive Date: 20090515
  Receipt Date: 20121009
  Transmission Date: 20130627
  Serious: Yes (Hospitalization)
  Sender: FDA-Public Use
  Company Number: PHHO2009CZ05899

PATIENT
  Age: 40 Year
  Sex: Male
  Weight: 51 kg

DRUGS (3)
  1. NEORAL [Suspect]
     Indication: RENAL TRANSPLANT
     Dosage: 50 mg, QD
     Route: 048
     Dates: start: 20080507
  2. CERTICAN [Concomitant]
     Indication: RENAL TRANSPLANT
     Dosage: 1.5 mg, BID
     Route: 048
     Dates: start: 20080508, end: 20080511
  3. PREDNISONE [Concomitant]
     Indication: RENAL TRANSPLANT
     Dosage: 5 mg, QD
     Route: 048
     Dates: start: 20080906

REACTIONS (2)
  - Complications of transplanted kidney [Not Recovered/Not Resolved]
  - Drug ineffective [Not Recovered/Not Resolved]
